FAERS Safety Report 10266222 (Version 2)
Quarter: 2014Q2

REPORT INFORMATION
  Report Type: Spontaneous
  Country: DE (occurrence: DE)
  Receive Date: 20140627
  Receipt Date: 20140627
  Transmission Date: 20141212
  Serious: Yes (Death, Hospitalization, Other)
  Sender: FDA-Public Use
  Company Number: DE-GILEAD-2013-0079063

PATIENT
  Age: 87 Year
  Sex: Male
  Weight: 66 kg

DRUGS (11)
  1. RANOLAZINE [Suspect]
     Indication: ANGINA PECTORIS
     Dosage: 375 MG, BID
     Route: 048
     Dates: start: 20120925, end: 20130102
  2. TARGIN [Concomitant]
     Dosage: 10/5 MG/DAY
     Route: 048
  3. BISOPROLOL [Concomitant]
     Dosage: 2.5 MG, UNK
     Route: 048
  4. AMLODIPINE [Concomitant]
     Dosage: 10 MG, UNK
     Route: 048
  5. ASS [Concomitant]
     Dosage: 100 MG, UNK
     Route: 048
  6. NITROLINGUAL [Concomitant]
     Dosage: UNK, PRN
     Route: 060
  7. RAMIPRIL [Concomitant]
     Dosage: 2.5 MG, UNK
     Route: 048
  8. FUROSEMIDE [Concomitant]
     Dosage: 80 MG, UNK
  9. SALBUTAMOL [Concomitant]
  10. SANASTHMAX [Concomitant]
  11. SPIRIVA [Concomitant]
     Dosage: 18 ?G, UNK

REACTIONS (3)
  - Bronchopneumonia [Fatal]
  - Sepsis [Fatal]
  - Cardiac failure [Fatal]
